FAERS Safety Report 8190770-1 (Version None)
Quarter: 2012Q1

REPORT INFORMATION
  Report Type: 
  Country: None (occurrence: None)
  Receive Date: 20120221
  Receipt Date: 20111207
  Transmission Date: 20120608
  Serious: No
  Sender: FDA-Public Use
  Company Number: 1000026128

PATIENT
  Age: 47 Year
  Sex: Male

DRUGS (4)
  1. PREZISTA (DARUNAVIR ETHANOLATE) (DARUNAVIR ETHANOLATE) [Concomitant]
  2. ISENTRESS (RALTEGRAVIR POTASSIUM) RALTEGRAVIR POTASSIUM) [Concomitant]
  3. VIIBRYD [Suspect]
     Indication: ANXIETY
     Dosage: 10 MG (10 MG, 1 IN 1 D), ORAL
     Route: 048
     Dates: start: 20111206, end: 20111206
  4. NORVIR [Suspect]
     Indication: HIV INFECTION

REACTIONS (4)
  - PALPITATIONS [None]
  - CHILLS [None]
  - DRUG INTERACTION [None]
  - VENTRICULAR EXTRASYSTOLES [None]
